FAERS Safety Report 4983146-9 (Version None)
Quarter: 2006Q2

REPORT INFORMATION
  Report Type: 
  Country: None (occurrence: None)
  Receive Date: 20060419
  Receipt Date: 20060403
  Transmission Date: 20061013
  Serious: Yes (Hospitalization)
  Sender: FDA-Public Use
  Company Number: DE200604000937

PATIENT
  Age: 62 Year
  Sex: Female

DRUGS (2)
  1. FORTEO [Suspect]
     Dosage: 20 UG DAILY (1/D)
     Dates: start: 20060110, end: 20060404
  2. FORTEO [Concomitant]

REACTIONS (1)
  - RETINAL HAEMORRHAGE [None]
